FAERS Safety Report 8096567-5 (Version None)
Quarter: 2012Q1

REPORT INFORMATION
  Report Type: 
  Country: None (occurrence: None)
  Receive Date: 20120129
  Receipt Date: 20111108
  Transmission Date: 20120608
  Serious: No
  Sender: FDA-Public Use
  Company Number: US-ABBOTT-11P-163-0872581-00

PATIENT
  Age: 57 Year
  Sex: Female

DRUGS (14)
  1. HUMIRA [Suspect]
     Indication: RHEUMATOID ARTHRITIS
     Dates: start: 20110812
  2. PLAVIX [Concomitant]
     Indication: BLOOD CHOLESTEROL INCREASED
  3. VECTICAL [Concomitant]
     Indication: PSORIASIS
  4. CELEXA [Concomitant]
     Indication: DEPRESSION
  5. ABILIFY [Concomitant]
     Indication: DEPRESSION
  6. ANATESA [Concomitant]
     Indication: CONSTIPATION
     Dosage: 1-2 TABS DAILY AS NEEDED
  7. ENTOCORT EC [Concomitant]
     Indication: GASTRIC DISORDER
  8. CRESTOR [Concomitant]
     Indication: BLOOD CHOLESTEROL INCREASED
  9. CLINORIL [Concomitant]
     Indication: ANTIINFLAMMATORY THERAPY
  10. CLOBETASOL [Concomitant]
     Indication: PRODUCT USED FOR UNKNOWN INDICATION
  11. LASIX [Concomitant]
     Indication: FLUID RETENTION
     Dosage: 1 TIME DAILY AS NEEDED
  12. LISINOPRIL [Concomitant]
     Indication: PRODUCT USED FOR UNKNOWN INDICATION
  13. ASPIRIN [Concomitant]
     Indication: PRODUCT USED FOR UNKNOWN INDICATION
  14. CALCIUM CITRATE [Concomitant]
     Indication: PRODUCT USED FOR UNKNOWN INDICATION

REACTIONS (3)
  - INJECTION SITE NODULE [None]
  - INJECTION SITE PAIN [None]
  - INJECTION SITE PAPULE [None]
